FAERS Safety Report 7998230-5 (Version None)
Quarter: 2011Q4

REPORT INFORMATION
  Report Type: 
  Country: None (occurrence: None)
  Receive Date: 20111221
  Receipt Date: 20110503
  Transmission Date: 20120403
  Serious: No
  Sender: FDA-Public Use
  Company Number: US-GLAXOSMITHKLINE-A0925566A

PATIENT
  Age: 52 Year
  Sex: Female

DRUGS (2)
  1. LOVAZA [Suspect]
     Indication: BLOOD CHOLESTEROL INCREASED
     Dosage: 2CAP TWICE PER DAY
     Route: 048
     Dates: start: 20110502
  2. TRIAMTERENE AND HYDROCHLOROTHIAZIDE [Concomitant]

REACTIONS (2)
  - THERAPEUTIC RESPONSE UNEXPECTED [None]
  - POLLAKIURIA [None]
